FAERS Safety Report 6568034-9 (Version None)
Quarter: 2010Q1

REPORT INFORMATION
  Report Type: 
  Country: None (occurrence: None)
  Receive Date: 20100203
  Receipt Date: 20100127
  Transmission Date: 20100710
  Serious: Yes (Death)
  Sender: FDA-Public Use
  Company Number: NZ-NOVOPROD-290794

PATIENT
  Sex: Male

DRUGS (3)
  1. NOVORAPID PENFILL [Suspect]
     Indication: TYPE 1 DIABETES MELLITUS
     Dates: end: 20090301
  2. ACTRAPID PENFILL [Suspect]
     Indication: TYPE 1 DIABETES MELLITUS
     Dosage: 4-6 IU, TID
  3. PROTAPHANE HM PENFILL [Suspect]
     Indication: TYPE 1 DIABETES MELLITUS
     Dosage: 15 IU, BID

REACTIONS (4)
  - BRAIN INJURY [None]
  - COMPLETED SUICIDE [None]
  - HYPOGLYCAEMIA [None]
  - INTENTIONAL OVERDOSE [None]
